FAERS Safety Report 10083419 (Version 1)
Quarter: 2014Q2

REPORT INFORMATION
  Report Type: Spontaneous
  Country: US (occurrence: None)
  Receive Date: 20140416
  Receipt Date: 20140416
  Transmission Date: 20141212
  Serious: No
  Sender: FDA-Public Use
  Company Number: None

PATIENT
  Age: 53 Year
  Sex: Male

DRUGS (2)
  1. HYDROMORPHONE [Suspect]
     Indication: ABDOMINAL PAIN
     Dosage: 3/16 @ 0814 + 09:09
     Route: 042
     Dates: start: 20140316
  2. ZOFRAN [Concomitant]

REACTIONS (2)
  - Apnoea [None]
  - Oxygen saturation decreased [None]
